FAERS Safety Report 11492162 (Version 1)
Quarter: 2015Q3

REPORT INFORMATION
  Report Type: Spontaneous
  Country: FR (occurrence: FR)
  Receive Date: 20150910
  Receipt Date: 20150910
  Transmission Date: 20151125
  Serious: Yes (Death)
  Sender: FDA-Public Use
  Company Number: PHHY2015FR107074

PATIENT
  Age: 64 Year
  Sex: Male

DRUGS (1)
  1. ATENOLOL SANDOZ [Suspect]
     Active Substance: ATENOLOL
     Indication: HYPERTENSION
     Route: 048

REACTIONS (3)
  - Myocardial infarction [Fatal]
  - Fatigue [Fatal]
  - Eye swelling [Fatal]
